FAERS Safety Report 13996593 (Version 1)
Quarter: 2017Q3

REPORT INFORMATION
  Report Type: Spontaneous
  Country: US (occurrence: US)
  Receive Date: 20170921
  Receipt Date: 20170921
  Transmission Date: 20171128
  Serious: Yes (Other)
  Sender: FDA-Public Use
  Company Number: US-PFIZER INC-2017403384

PATIENT
  Age: 42 Year
  Sex: Male

DRUGS (1)
  1. NEURONTIN [Suspect]
     Active Substance: GABAPENTIN
     Indication: NECK PAIN
     Dosage: 50 MG, 2X/DAY(Q AM 1 QHS )
     Route: 048
     Dates: start: 199206, end: 199206

REACTIONS (3)
  - Drug hypersensitivity [Unknown]
  - Product use in unapproved indication [Unknown]
  - Loss of consciousness [Recovered/Resolved]

NARRATIVE: CASE EVENT DATE: 1992
